FAERS Safety Report 11635661 (Version 8)
Quarter: 2016Q4

REPORT INFORMATION
  Report Type: Spontaneous
  Country: US (occurrence: US)
  Receive Date: 20151016
  Receipt Date: 20161014
  Transmission Date: 20170206
  Serious: Yes (Hospitalization, Other)
  Sender: FDA-Public Use
  Company Number: US-PFIZER INC-2015341919

PATIENT
  Age: 37 Year
  Sex: Female

DRUGS (1)
  1. SOMAVERT [Suspect]
     Active Substance: PEGVISOMANT
     Indication: ACROMEGALY
     Dosage: 20 MG, 1X/DAY (DAILY)
     Dates: start: 20110301

REACTIONS (26)
  - Asthenia [Not Recovered/Not Resolved]
  - Somnolence [Not Recovered/Not Resolved]
  - Myalgia [Unknown]
  - Apnoea [Unknown]
  - Intentional product misuse [Not Recovered/Not Resolved]
  - Pain in extremity [Not Recovered/Not Resolved]
  - Condition aggravated [Not Recovered/Not Resolved]
  - Self esteem decreased [Not Recovered/Not Resolved]
  - Nausea [Unknown]
  - Headache [Not Recovered/Not Resolved]
  - Large intestine polyp [Unknown]
  - Galactorrhoea [Unknown]
  - Arthralgia [Not Recovered/Not Resolved]
  - Arthritis [Not Recovered/Not Resolved]
  - Psychiatric symptom [Not Recovered/Not Resolved]
  - Syncope [Not Recovered/Not Resolved]
  - Constipation [Unknown]
  - Injection site bruising [Unknown]
  - Pain [Not Recovered/Not Resolved]
  - Fatigue [Not Recovered/Not Resolved]
  - Precancerous cells present [Unknown]
  - Abdominal discomfort [Unknown]
  - Snoring [Unknown]
  - Hot flush [Unknown]
  - Depressed mood [Not Recovered/Not Resolved]
  - Injection site reaction [Unknown]
